FAERS Safety Report 16938618 (Version 1)
Quarter: 2019Q4

REPORT INFORMATION
  Report Type: Spontaneous
  Country: US (occurrence: US)
  Receive Date: 20190828
  Receipt Date: 20190828
  Transmission Date: 20200122
  Serious: Yes (Death)
  Sender: FDA-Public Use
  Company Number: None

PATIENT
  Sex: Male

DRUGS (14)
  1. LISINOPRIL. [Concomitant]
     Active Substance: LISINOPRIL
  2. METFORMIN [Concomitant]
     Active Substance: METFORMIN HYDROCHLORIDE
  3. PLAVIX [Concomitant]
     Active Substance: CLOPIDOGREL BISULFATE
  4. LANTUS [Concomitant]
     Active Substance: INSULIN GLARGINE
  5. LIPITOR [Concomitant]
     Active Substance: ATORVASTATIN CALCIUM
  6. TYLENOL [Concomitant]
     Active Substance: ACETAMINOPHEN
  7. ALBUTEROL. [Concomitant]
     Active Substance: ALBUTEROL
  8. BENZONATATE. [Concomitant]
     Active Substance: BENZONATATE
  9. FOSAMAX [Concomitant]
     Active Substance: ALENDRONATE SODIUM
  10. ZETIA [Concomitant]
     Active Substance: EZETIMIBE
  11. ESBRIET [Suspect]
     Active Substance: PIRFENIDONE
     Indication: IDIOPATHIC PULMONARY FIBROSIS
     Route: 048
     Dates: start: 20190706
  12. ANORO ELLIPT [Concomitant]
  13. ASPIRIN. [Concomitant]
     Active Substance: ASPIRIN
  14. RANEXA [Concomitant]
     Active Substance: RANOLAZINE

REACTIONS (1)
  - Death [None]
